FAERS Safety Report 5208944-8 (Version None)
Quarter: 2007Q1

REPORT INFORMATION
  Report Type: 
  Country: None (occurrence: None)
  Receive Date: 20070111
  Receipt Date: 20070111
  Transmission Date: 20070707
  Serious: Yes (Death)
  Sender: FDA-Public Use
  Company Number: None

PATIENT
  Sex: Female
  Weight: 49.8957 kg

DRUGS (1)
  1. SOMA [Suspect]
     Indication: BACK PAIN
     Dates: start: 20041115, end: 20041117

REACTIONS (9)
  - AMNESIA [None]
  - CHOKING [None]
  - DRUG ABUSER [None]
  - DRUG DEPENDENCE [None]
  - FACIAL PALSY [None]
  - MUSCULOSKELETAL STIFFNESS [None]
  - OVERDOSE [None]
  - SPEECH DISORDER [None]
  - VOMITING [None]
